FAERS Safety Report 9697071 (Version 1)
Quarter: 2013Q4

REPORT INFORMATION
  Report Type: Spontaneous
  Country: US (occurrence: US)
  Receive Date: 20131120
  Receipt Date: 20131120
  Transmission Date: 20140711
  Serious: Yes (Hospitalization)
  Sender: FDA-Public Use
  Company Number: US-AMGEN-USASP2013080244

PATIENT
  Age: 76 Year
  Sex: Female

DRUGS (3)
  1. PROLIA [Suspect]
     Indication: OSTEOPOROSIS POSTMENOPAUSAL
     Dosage: 60 MG, Q6MO
     Route: 065
     Dates: start: 20131031
  2. NAMENDA [Concomitant]
  3. IRON [Concomitant]
     Indication: IRON DEFICIENCY

REACTIONS (4)
  - Paraesthesia [Unknown]
  - Chest pain [Unknown]
  - Fatigue [Unknown]
  - Hypocalcaemia [Not Recovered/Not Resolved]
